FAERS Safety Report 9645722 (Version 1)
Quarter: 2013Q4

REPORT INFORMATION
  Report Type: Spontaneous
  Country: IT (occurrence: IT)
  Receive Date: 20131025
  Receipt Date: 20131025
  Transmission Date: 20140711
  Serious: Yes (Hospitalization)
  Sender: FDA-Public Use
  Company Number: IT-TEVA-438851ISR

PATIENT
  Age: 81 Year
  Sex: Female

DRUGS (8)
  1. GABAPENTIN [Suspect]
     Indication: MUSCULOSKELETAL PAIN
     Dosage: 600 MILLIGRAM DAILY;
     Route: 048
     Dates: start: 20130915, end: 20130921
  2. LEXIL 15 MG + 1,5 MG [Suspect]
     Indication: ANXIETY
     Dosage: 1 DOSAGE FORMS DAILY; PROPANTHELINE BROMIDE:15 MG AND BROMAZEPAM: 1,5 MG
     Route: 048
     Dates: start: 20110921
  3. PANTORC 40 MG [Concomitant]
     Dosage: GASTRO RESISTANT TABLETS
     Route: 048
  4. DILATREND 25 MG [Concomitant]
  5. LEVOPRAID [Concomitant]
  6. ELOPRAM 40 MG/ML [Concomitant]
  7. CO EFFERALGAN 500 MG + 30 MG [Concomitant]
     Dosage: EFFERVESCENT TABLET
  8. EUTIROX 100 MCG [Concomitant]

REACTIONS (2)
  - Bradyphrenia [Recovered/Resolved]
  - Sopor [Recovered/Resolved]
